FAERS Safety Report 5509694-0 (Version None)
Quarter: 2007Q4

REPORT INFORMATION
  Report Type: 
  Country: None (occurrence: None)
  Receive Date: 20071107
  Receipt Date: 20071107
  Transmission Date: 20080405
  Serious: No
  Sender: FDA-Public Use
  Company Number: None

PATIENT
  Age: 58 Year
  Sex: Female

DRUGS (1)
  1. PROAIR HFA [Suspect]
     Dosage: 2 PUFFS AM AND 1 PUFF PM QD-BID PO
     Route: 048
     Dates: start: 20070328, end: 20071106

REACTIONS (1)
  - PHARMACEUTICAL PRODUCT COMPLAINT [None]
